FAERS Safety Report 21199984 (Version 2)
Quarter: 2022Q3

REPORT INFORMATION
  Report Type: Spontaneous
  Country: CA (occurrence: None)
  Receive Date: 20220811
  Receipt Date: 20220816
  Transmission Date: 20221026
  Serious: Yes (Other)
  Sender: FDA-Public Use
  Company Number: CA-ROCHE-3156138

PATIENT
  Age: 73 Year
  Sex: Female

DRUGS (2)
  1. COBIMETINIB [Suspect]
     Active Substance: COBIMETINIB
     Indication: Lung cancer metastatic
     Route: 065
     Dates: start: 202203, end: 202206
  2. VEMURAFENIB [Suspect]
     Active Substance: VEMURAFENIB
     Indication: Lung cancer metastatic
     Route: 065
     Dates: start: 202203, end: 202206

REACTIONS (6)
  - Seizure [Unknown]
  - Confusional state [Unknown]
  - Visual impairment [Unknown]
  - Posterior reversible encephalopathy syndrome [Unknown]
  - Non-small cell lung cancer [Unknown]
  - Off label use [Unknown]
